FAERS Safety Report 22520524 (Version 2)
Quarter: 2023Q2

REPORT INFORMATION
  Report Type: Spontaneous
  Country: US (occurrence: US)
  Receive Date: 20230605
  Receipt Date: 20230608
  Transmission Date: 20230721
  Serious: Yes (Other)
  Sender: FDA-Public Use
  Company Number: US-PFIZER INC-202300208034

PATIENT
  Sex: Male

DRUGS (1)
  1. ZINC CHLORIDE [Suspect]
     Active Substance: ZINC CHLORIDE
     Indication: Acne
     Dosage: 300 MG, 1X/DAY

REACTIONS (4)
  - Copper deficiency [Recovered/Resolved]
  - Anaemia [Recovered/Resolved]
  - Neutropenia [Recovered/Resolved]
  - Granulocytes maturation arrest [Recovered/Resolved]
